FAERS Safety Report 19464078 (Version 1)
Quarter: 2021Q2

REPORT INFORMATION
  Report Type: Spontaneous
  Country: HR (occurrence: HR)
  Receive Date: 20210625
  Receipt Date: 20210625
  Transmission Date: 20210717
  Serious: Yes (Other)
  Sender: FDA-Public Use
  Company Number: NVSC2021HR139589

PATIENT
  Age: 72 Year
  Sex: Female
  Weight: 60 kg

DRUGS (1)
  1. KLIMICIN [Suspect]
     Active Substance: CLINDAMYCIN
     Indication: SKIN INFECTION
     Dosage: 300 MG (300 MG; 3X1 TIME INTERVAL: 0.33 D, NASTAVLJA SE TERAPIJA DRUGIM ANTIBIOTIKOM IZ DRUGE SKUPIN
     Route: 048
     Dates: start: 20210528, end: 20210529

REACTIONS (3)
  - Vomiting [Recovering/Resolving]
  - Chest pain [Recovering/Resolving]
  - Choking [Recovering/Resolving]

NARRATIVE: CASE EVENT DATE: 20210528
